FAERS Safety Report 7906628-6 (Version None)
Quarter: 2011Q4

REPORT INFORMATION
  Report Type: 
  Country: None (occurrence: None)
  Receive Date: 20111109
  Receipt Date: 20111109
  Transmission Date: 20120403
  Serious: Yes (Life-Threatening)
  Sender: FDA-Public Use
  Company Number: None

PATIENT
  Sex: Male
  Weight: 92.9874 kg

DRUGS (2)
  1. AVODART [Suspect]
     Indication: PROSTATOMEGALY
     Dosage: DAILY ORAL
     Route: 048
  2. PROSCAR [Suspect]
     Indication: PROSTATOMEGALY
     Dosage: DAILY ORAL
     Route: 048

REACTIONS (1)
  - PROSTATE CANCER [None]
